FAERS Safety Report 9763562 (Version 3)
Quarter: 2022Q2

REPORT INFORMATION
  Report Type: Spontaneous
  Country: IT (occurrence: IT)
  Receive Date: 20131216
  Receipt Date: 20220524
  Transmission Date: 20220721
  Serious: Yes (Death, Hospitalization)
  Sender: FDA-Public Use
  Company Number: PHHY2013IT144698

PATIENT
  Age: 73 Year
  Sex: Male

DRUGS (8)
  1. OXALIPLATIN [Suspect]
     Active Substance: OXALIPLATIN
     Indication: Malignant neoplasm progression
     Dosage: UNK UNK, CYCLIC
     Route: 041
     Dates: start: 201211
  2. OXALIPLATIN [Suspect]
     Active Substance: OXALIPLATIN
     Indication: Adenocarcinoma of colon
  3. OXALIPLATIN [Suspect]
     Active Substance: OXALIPLATIN
     Indication: Colon cancer metastatic
  4. CAPECITABINE [Concomitant]
     Active Substance: CAPECITABINE
     Indication: Adenocarcinoma of colon
     Dosage: UNK, CYCLIC
     Route: 041
     Dates: start: 201211
  5. CAPECITABINE [Concomitant]
     Active Substance: CAPECITABINE
     Indication: Malignant neoplasm progression
  6. CAPECITABINE [Concomitant]
     Active Substance: CAPECITABINE
     Indication: Colon cancer metastatic
  7. LEUCOVORIN [Concomitant]
     Active Substance: LEUCOVORIN
     Indication: Adenocarcinoma of colon
     Dosage: UNK
     Route: 041
     Dates: start: 201211
  8. LEUCOVORIN [Concomitant]
     Active Substance: LEUCOVORIN
     Indication: Malignant neoplasm progression

REACTIONS (14)
  - Thrombotic thrombocytopenic purpura [Fatal]
  - Haemolytic anaemia [Fatal]
  - Thrombocytopenia [Fatal]
  - Anaemia [Fatal]
  - Renal failure [Fatal]
  - Renal impairment [Fatal]
  - Seizure [Fatal]
  - Dyspnoea [Fatal]
  - Pyrexia [Fatal]
  - Oxygen saturation decreased [Fatal]
  - Heart rate increased [Fatal]
  - Blood pressure increased [Fatal]
  - Platelet count decreased [Fatal]
  - Haemoglobin decreased [Fatal]
